FAERS Safety Report 17565254 (Version 1)
Quarter: 2020Q1

REPORT INFORMATION
  Report Type: Spontaneous
  Country: FR (occurrence: FR)
  Receive Date: 20200320
  Receipt Date: 20200320
  Transmission Date: 20200409
  Serious: Yes (Hospitalization)
  Sender: FDA-Public Use
  Company Number: FR-ACCORD-176485

PATIENT
  Age: 89 Year
  Sex: Female
  Weight: 58 kg

DRUGS (7)
  1. LANSOPRAZOLE. [Concomitant]
     Active Substance: LANSOPRAZOLE
     Route: 048
     Dates: start: 20190729
  2. KARDEGIC [Concomitant]
     Active Substance: ASPIRIN DL-LYSINE
     Dosage: STRENGTH: 75 MG
     Route: 048
     Dates: start: 20190729
  3. STAGID [Concomitant]
     Active Substance: METFORMIN PAMOATE
     Dosage: STRENGTH: 700 MG
     Route: 048
  4. BISOCE [Suspect]
     Active Substance: BISOPROLOL
     Indication: ACUTE CORONARY SYNDROME
     Dosage: STRENGTH: 2.5 MG
     Route: 048
     Dates: start: 20190729, end: 20190902
  5. ATORVASTATIN/ATORVASTATIN CALCIUM [Suspect]
     Active Substance: ATORVASTATIN CALCIUM
     Indication: ACUTE CORONARY SYNDROME
     Route: 048
     Dates: start: 20190729, end: 20190817
  6. BRILIQUE [Suspect]
     Active Substance: TICAGRELOR
     Indication: ACUTE CORONARY SYNDROME
     Dosage: STRENGTH: 90 MG
     Route: 048
     Dates: start: 20190729, end: 20190902
  7. PERINDOPRIL [Suspect]
     Active Substance: PERINDOPRIL
     Indication: ACUTE CORONARY SYNDROME
     Route: 048
     Dates: start: 20190729, end: 20190902

REACTIONS (1)
  - Toxic skin eruption [Recovered/Resolved]

NARRATIVE: CASE EVENT DATE: 20190817
